FAERS Safety Report 10243921 (Version 1)
Quarter: 2014Q2

REPORT INFORMATION
  Report Type: Spontaneous
  Country: US (occurrence: US)
  Receive Date: 20140618
  Receipt Date: 20140618
  Transmission Date: 20141212
  Serious: Yes (Other)
  Sender: FDA-Public Use
  Company Number: CHPA2014US008335

PATIENT
  Age: 70 Year
  Sex: Male

DRUGS (2)
  1. THERAPEUTIC MINERAL ICE [Suspect]
     Indication: CLUSTER HEADACHE
     Dosage: UPTO THREE TIMES PER DAY
     Route: 061
  2. THERAPEUTIC MINERAL ICE [Suspect]
     Indication: OFF LABEL USE

REACTIONS (3)
  - Gout [Unknown]
  - Therapeutic response changed [Unknown]
  - Wrong technique in drug usage process [Unknown]
